FAERS Safety Report 5751292-8 (Version None)
Quarter: 2008Q2

REPORT INFORMATION
  Report Type: 
  Country: None (occurrence: None)
  Receive Date: 20080528
  Receipt Date: 20080516
  Transmission Date: 20081010
  Serious: Yes (Other)
  Sender: FDA-Public Use
  Company Number: JP-PFIZER INC-2008032364

PATIENT
  Sex: Female

DRUGS (8)
  1. RELPAX [Suspect]
     Indication: HEADACHE
     Route: 048
     Dates: start: 20080319, end: 20080403
  2. LITHIUM CARBONATE [Concomitant]
     Route: 048
  3. DEPAS [Concomitant]
     Route: 048
  4. RISPERDAL [Concomitant]
     Route: 048
  5. LANDSEN [Concomitant]
     Route: 048
  6. MYSLEE [Concomitant]
     Route: 048
  7. DORAL [Concomitant]
     Route: 048
  8. SERTRALINE [Concomitant]
     Route: 048

REACTIONS (1)
  - TOXIC SKIN ERUPTION [None]
